FAERS Safety Report 7155889-2 (Version None)
Quarter: 2010Q4

REPORT INFORMATION
  Report Type: 
  Country: None (occurrence: None)
  Receive Date: 20101214
  Receipt Date: 20101206
  Transmission Date: 20110411
  Serious: Yes (Hospitalization)
  Sender: FDA-Public Use
  Company Number: US-BRISTOL-MYERS SQUIBB COMPANY-15427339

PATIENT
  Age: 82 Year
  Sex: Male

DRUGS (2)
  1. COUMADIN [Suspect]
     Route: 065
  2. REVLIMID [Suspect]
     Indication: MULTIPLE MYELOMA
     Dosage: 25MG DAILY FOR 21/28 DAYS
     Route: 048
     Dates: start: 20100601

REACTIONS (2)
  - OEDEMA PERIPHERAL [None]
  - PLATELET COUNT DECREASED [None]
